FAERS Safety Report 7900789-0 (Version None)
Quarter: 2011Q4

REPORT INFORMATION
  Report Type: 
  Country: None (occurrence: None)
  Receive Date: 20111108
  Receipt Date: 20111025
  Transmission Date: 20120403
  Serious: Yes (Other)
  Sender: FDA-Public Use
  Company Number: FR-ASTELLAS-2011EU007642

PATIENT
  Age: 77 Year
  Sex: Male

DRUGS (4)
  1. ALDACTAZIDE [Concomitant]
     Indication: HYPERTENSION
     Dosage: UNK
     Route: 048
  2. VESICARE [Suspect]
     Indication: POLLAKIURIA
     Dosage: 5 MG, UID/QD
     Route: 048
     Dates: start: 20111017, end: 20111021
  3. ASPIRIN [Concomitant]
     Dosage: UNK
     Route: 048
  4. PRAVASTATIN [Concomitant]
     Indication: HYPERCHOLESTEROLAEMIA
     Dosage: UNK
     Route: 048

REACTIONS (5)
  - DRUG INEFFECTIVE [None]
  - CONSTIPATION [None]
  - URINARY INCONTINENCE [None]
  - PELVIC PAIN [None]
  - FAECALOMA [None]
